FAERS Safety Report 21721991 (Version 1)
Quarter: 2022Q4

REPORT INFORMATION
  Report Type: Spontaneous
  Country: CA (occurrence: CA)
  Receive Date: 20221213
  Receipt Date: 20221213
  Transmission Date: 20230113
  Serious: Yes (Other)
  Sender: FDA-Public Use
  Company Number: CA-ANIPHARMA-2021-CA-001847

PATIENT
  Age: 77 Year
  Sex: Male

DRUGS (3)
  1. CASODEX [Suspect]
     Active Substance: BICALUTAMIDE
     Indication: Product used for unknown indication
     Route: 065
  2. ENZALUTAMIDE [Suspect]
     Active Substance: ENZALUTAMIDE
     Route: 065
  3. LEUPROLIDE ACETATE [Suspect]
     Active Substance: LEUPROLIDE ACETATE
     Dosage: 45 MG UNKNOWN
     Route: 058

REACTIONS (10)
  - Abdominal pain upper [Unknown]
  - Injection site mass [Unknown]
  - Asthenia [Unknown]
  - Decreased appetite [Unknown]
  - Dizziness [Unknown]
  - Hot flush [Unknown]
  - Hypertensive crisis [Unknown]
  - Nausea [Unknown]
  - Prostatic specific antigen increased [Unknown]
  - Weight decreased [Unknown]
